FAERS Safety Report 11156985 (Version 1)
Quarter: 2015Q2

REPORT INFORMATION
  Report Type: Spontaneous
  Country: BR (occurrence: BR)
  Receive Date: 20150602
  Receipt Date: 20150602
  Transmission Date: 20150821
  Serious: Yes (Other)
  Sender: FDA-Public Use
  Company Number: BR-BAXTER-2015BAX027986

PATIENT
  Sex: Female

DRUGS (1)
  1. PLASMA-LYTE [Suspect]
     Active Substance: ELECTROLYTES NOS
     Indication: PRODUCT USED FOR UNKNOWN INDICATION
     Route: 065

REACTIONS (3)
  - General physical health deterioration [Unknown]
  - Product deposit [Recovered/Resolved]
  - Poor quality drug administered [Recovered/Resolved]
